FAERS Safety Report 12094141 (Version 3)
Quarter: 2016Q3

REPORT INFORMATION
  Report Type: Spontaneous
  Country: DE (occurrence: DE)
  Receive Date: 20160219
  Receipt Date: 20160714
  Transmission Date: 20161109
  Serious: Yes (Death, Hospitalization, Other)
  Sender: FDA-Public Use
  Company Number: DE-UCBSA-2016006079

PATIENT
  Age: 49 Year
  Sex: Female

DRUGS (3)
  1. VIMPAT [Suspect]
     Active Substance: LACOSAMIDE
     Indication: EPILEPSY
     Dosage: (STRENGTH: 50 MG) , 150-0-100 MG
     Route: 048
     Dates: start: 20150218
  2. LAMOTRIGINE. [Concomitant]
     Active Substance: LAMOTRIGINE
     Indication: SEIZURE
     Dosage: 150 MG, 2X/DAY (BID), STRENGTH: 100 MG
     Route: 048
     Dates: start: 20091027
  3. VIMPAT [Suspect]
     Active Substance: LACOSAMIDE
     Dosage: UNKNOWN REDUCED DOSE
     Route: 048
     Dates: start: 20160121, end: 20160128

REACTIONS (4)
  - Loss of consciousness [Unknown]
  - Cardiac arrest [Fatal]
  - Asphyxia [Fatal]
  - Dizziness [Unknown]

NARRATIVE: CASE EVENT DATE: 201601
